FAERS Safety Report 5670595-9 (Version None)
Quarter: 2008Q1

REPORT INFORMATION
  Report Type: 
  Country: None (occurrence: None)
  Receive Date: 20080313
  Receipt Date: 20080229
  Transmission Date: 20080703
  Serious: Yes (Other)
  Sender: FDA-Public Use
  Company Number: 2008S1003448

PATIENT
  Age: 17 Year
  Sex: Male

DRUGS (1)
  1. AMNESTEEM [Suspect]
     Indication: ACNE
     Dosage: ORAL
     Route: 048
     Dates: start: 20070201, end: 20070801

REACTIONS (7)
  - ABNORMAL BEHAVIOUR [None]
  - ANGER [None]
  - DEPRESSION [None]
  - EMOTIONAL DISORDER [None]
  - MOOD ALTERED [None]
  - SELF-INJURIOUS IDEATION [None]
  - VIOLENCE-RELATED SYMPTOM [None]
